FAERS Safety Report 10731447 (Version 1)
Quarter: 2015Q1

REPORT INFORMATION
  Report Type: Spontaneous
  Country: IN (occurrence: IN)
  Receive Date: 20150123
  Receipt Date: 20150123
  Transmission Date: 20150721
  Serious: Yes (Other)
  Sender: FDA-Public Use
  Company Number: IN-AUROBINDO-AUR-APL-2015-00287

PATIENT
  Age: 25 Year
  Sex: Male

DRUGS (16)
  1. RISPERIDONE 2MG [Suspect]
     Active Substance: RISPERIDONE
     Indication: IRRITABILITY
  2. RISPERIDONE 2MG [Suspect]
     Active Substance: RISPERIDONE
     Indication: IMPAIRED SELF-CARE
  3. RISPERIDONE 2MG [Suspect]
     Active Substance: RISPERIDONE
     Indication: STARING
  4. AMISULPRIDE 100 MG [Suspect]
     Active Substance: AMISULPRIDE
     Indication: SUSPICIOUSNESS
     Dosage: 100 MG, DAILY
     Route: 048
  5. RISPERIDONE 2MG [Suspect]
     Active Substance: RISPERIDONE
     Indication: SUSPICIOUSNESS
     Dosage: 2 MG, DAILY
     Route: 048
  6. AMISULPRIDE 100 MG [Suspect]
     Active Substance: AMISULPRIDE
     Indication: STARING
  7. AMISULPRIDE 100 MG [Suspect]
     Active Substance: AMISULPRIDE
     Indication: INSOMNIA
  8. AMISULPRIDE 100 MG [Suspect]
     Active Substance: AMISULPRIDE
     Indication: IMPAIRED SELF-CARE
  9. AMISULPRIDE 100 MG [Suspect]
     Active Substance: AMISULPRIDE
     Indication: NEGATIVISM
  10. RISPERIDONE 2MG [Suspect]
     Active Substance: RISPERIDONE
     Indication: SOCIAL AVOIDANT BEHAVIOUR
  11. RISPERIDONE 2MG [Suspect]
     Active Substance: RISPERIDONE
     Indication: MUTISM
  12. RISPERIDONE 2MG [Suspect]
     Active Substance: RISPERIDONE
     Indication: INSOMNIA
  13. AMISULPRIDE 100 MG [Suspect]
     Active Substance: AMISULPRIDE
     Indication: SOCIAL AVOIDANT BEHAVIOUR
  14. AMISULPRIDE 100 MG [Suspect]
     Active Substance: AMISULPRIDE
     Indication: IRRITABILITY
  15. RISPERIDONE 2MG [Suspect]
     Active Substance: RISPERIDONE
     Indication: NEGATIVISM
  16. AMISULPRIDE 100 MG [Suspect]
     Active Substance: AMISULPRIDE
     Indication: MUTISM

REACTIONS (4)
  - Pain [Recovered/Resolved]
  - Oromandibular dystonia [Recovered/Resolved]
  - Joint dislocation [Recovered/Resolved]
  - Trismus [Recovered/Resolved]
